FAERS Safety Report 9672443 (Version 2)
Quarter: 2013Q4

REPORT INFORMATION
  Report Type: Spontaneous
  Country: US (occurrence: US)
  Receive Date: 20131106
  Receipt Date: 20131106
  Transmission Date: 20140711
  Serious: Yes (Death, Other)
  Sender: FDA-Public Use
  Company Number: US-TAKEDA-TPA2013A03280

PATIENT
  Sex: 0

DRUGS (3)
  1. ACTOS [Suspect]
     Indication: TYPE 2 DIABETES MELLITUS
     Dosage: 45 MG, UNK
     Dates: start: 2007, end: 2010
  2. METFORMIN [Concomitant]
     Dosage: 500 MG, UNK
  3. DIABETA                            /00145301/ [Concomitant]
     Dosage: 5 MG, UNK

REACTIONS (1)
  - Bladder cancer [Fatal]
